FAERS Safety Report 14417375 (Version 1)
Quarter: 2018Q1

REPORT INFORMATION
  Report Type: Spontaneous
  Country: US (occurrence: US)
  Receive Date: 20180122
  Receipt Date: 20180122
  Transmission Date: 20180509
  Serious: No
  Sender: FDA-Public Use
  Company Number: US-ALLERGAN-1714757US

PATIENT
  Age: 72 Year
  Sex: Female
  Weight: 76.64 kg

DRUGS (2)
  1. PRED FORTE [Suspect]
     Active Substance: PREDNISOLONE ACETATE
     Dosage: UNK
     Dates: start: 201702
  2. PRED FORTE [Suspect]
     Active Substance: PREDNISOLONE ACETATE
     Indication: HERPES ZOSTER
     Dosage: 1 GTT, TID
     Route: 047

REACTIONS (9)
  - Cataract [Unknown]
  - Eye discharge [Recovered/Resolved]
  - Eye irritation [Not Recovered/Not Resolved]
  - Eye opacity [Recovered/Resolved]
  - Visual impairment [Not Recovered/Not Resolved]
  - Vision blurred [Not Recovered/Not Resolved]
  - Eye pain [Recovered/Resolved]
  - Product container issue [Unknown]
  - Corneal transplant [Unknown]

NARRATIVE: CASE EVENT DATE: 20170409
